FAERS Safety Report 13961045 (Version 1)
Quarter: 2017Q3

REPORT INFORMATION
  Report Type: Spontaneous
  Country: CN (occurrence: CN)
  Receive Date: 20170912
  Receipt Date: 20170912
  Transmission Date: 20171128
  Serious: Yes (Hospitalization, Other)
  Sender: FDA-Public Use
  Company Number: CN-GLAXOSMITHKLINE-CN2017GSK135282

PATIENT
  Age: 75 Year
  Sex: Male

DRUGS (3)
  1. SHOUBISHAN (INDAPAMIDE) [Suspect]
     Active Substance: INDAPAMIDE
     Indication: HYPERTENSION
     Dosage: 0.5 DF, QD
     Route: 048
  2. SERETIDE [Suspect]
     Active Substance: FLUTICASONE PROPIONATE\SALMETEROL XINAFOATE
     Indication: CHRONIC OBSTRUCTIVE PULMONARY DISEASE
     Dosage: UNK UNK, QD
     Route: 055
     Dates: start: 201304, end: 20170725
  3. SERETIDE [Suspect]
     Active Substance: FLUTICASONE PROPIONATE\SALMETEROL XINAFOATE
     Dosage: 1 PUFF(S), BID
     Route: 055
     Dates: start: 20170725

REACTIONS (17)
  - Flushing [Not Recovered/Not Resolved]
  - Decreased appetite [Unknown]
  - Pneumonia [Unknown]
  - Temperature intolerance [Unknown]
  - Productive cough [Unknown]
  - Dermatitis allergic [Unknown]
  - Nasopharyngitis [Unknown]
  - Alcohol intolerance [Unknown]
  - Dyspnoea [Recovered/Resolved]
  - Sputum increased [Unknown]
  - Erythema [Unknown]
  - Cough [Unknown]
  - Rash [Not Recovered/Not Resolved]
  - Sputum discoloured [Unknown]
  - Sputum purulent [Unknown]
  - Product use in unapproved indication [Unknown]
  - Chills [Unknown]

NARRATIVE: CASE EVENT DATE: 201304
